FAERS Safety Report 6173173-0 (Version None)
Quarter: 2009Q2

REPORT INFORMATION
  Report Type: 
  Country: None (occurrence: None)
  Receive Date: 20090430
  Receipt Date: 20090423
  Transmission Date: 20091009
  Serious: Yes (Death)
  Sender: FDA-Public Use
  Company Number: GB-PFIZER INC-2009202853

PATIENT

DRUGS (6)
  1. BLINDED *PLACEBO [Suspect]
     Indication: COLORECTAL CANCER
     Dosage: DAILY
     Dates: start: 20080626
  2. BLINDED SUNITINIB MALATE [Suspect]
     Indication: COLORECTAL CANCER
     Dosage: DAILY
     Dates: start: 20080626
  3. IRINOTECAN HCL [Suspect]
     Indication: COLORECTAL CANCER
     Dosage: 350 MG, EVERY 2 WEEKS CYCLIC
     Route: 042
     Dates: start: 20080626
  4. FLUOROURACIL [Suspect]
     Indication: COLORECTAL CANCER
     Dosage: 800 MG, LOADING EVERY 2 WEEKS
     Route: 042
     Dates: start: 20080626
  5. FLUOROURACIL [Suspect]
     Dosage: 4800 MG, INFUSION EVERY 2 WEEKS CYCLIC
     Dates: start: 20080626
  6. CALCIUM FOLINATE [Suspect]
     Indication: COLORECTAL CANCER
     Dosage: 400 MG, EVERY 2 WEEKS CYCLIC
     Dates: start: 20080626

REACTIONS (2)
  - MYOCARDIAL INFARCTION [None]
  - PULMONARY EMBOLISM [None]
